FAERS Safety Report 9122431 (Version 1)
Quarter: 2013Q1

REPORT INFORMATION
  Report Type: Spontaneous
  Country: US (occurrence: US)
  Receive Date: 20130114
  Receipt Date: 20130114
  Transmission Date: 20140127
  Serious: No
  Sender: FDA-Public Use
  Company Number: US-BAYER-2012-135684

PATIENT
  Sex: Male

DRUGS (1)
  1. STIVARGA [Suspect]

REACTIONS (2)
  - Wrong technique in drug usage process [None]
  - Stomatitis [None]
